FAERS Safety Report 10055554 (Version 1)
Quarter: 2014Q2

REPORT INFORMATION
  Report Type: Spontaneous
  Country: US (occurrence: None)
  Receive Date: 20140402
  Receipt Date: 20140402
  Transmission Date: 20141212
  Serious: Yes (Hospitalization, Disabling)
  Sender: FDA-Public Use
  Company Number: None

PATIENT
  Age: 60 Year
  Sex: Female

DRUGS (2)
  1. CANDEX [Suspect]
     Indication: CANDIDA INFECTION
     Dosage: 2 CAPSULES
     Route: 048
     Dates: start: 20120626, end: 20120629
  2. SIMILAS LIPO [Suspect]

REACTIONS (5)
  - Abdominal pain upper [None]
  - Vomiting [None]
  - Nausea [None]
  - Intestinal obstruction [None]
  - Volvulus of small bowel [None]
